FAERS Safety Report 14970538 (Version 2)
Quarter: 2018Q2

REPORT INFORMATION
  Report Type: Spontaneous
  Country: JP (occurrence: JP)
  Receive Date: 20180604
  Receipt Date: 20180627
  Transmission Date: 20180711
  Serious: Yes (Hospitalization, Other)
  Sender: FDA-Public Use
  Company Number: JP-ELI_LILLY_AND_COMPANY-JP201804012771

PATIENT
  Age: 24 Year
  Sex: Male

DRUGS (13)
  1. BELSOMRA [Concomitant]
     Active Substance: SUVOREXANT
     Dosage: 15 MG, EACH EVENING
     Route: 048
  2. STRATTERA [Suspect]
     Active Substance: ATOMOXETINE HYDROCHLORIDE
     Dosage: 30 MG, BID
     Route: 048
     Dates: start: 20180328, end: 20180403
  3. STRATTERA [Suspect]
     Active Substance: ATOMOXETINE HYDROCHLORIDE
     Dosage: 40 MG, EACH MORNING
     Route: 048
     Dates: start: 20180417, end: 20180418
  4. STRATTERA [Suspect]
     Active Substance: ATOMOXETINE HYDROCHLORIDE
     Dosage: 20 MG, BID
     Route: 048
     Dates: start: 20180312, end: 20180327
  5. LEXOTAN [Suspect]
     Active Substance: BROMAZEPAM
     Indication: ANXIETY
     Dosage: 5 MG, TID
     Route: 048
     Dates: start: 201803, end: 20180320
  6. PAROXETINE. [Concomitant]
     Active Substance: PAROXETINE
     Indication: ANXIETY
     Dosage: 10 MG, DAILY
     Route: 048
     Dates: start: 20180301, end: 20180306
  7. PAROXETINE. [Concomitant]
     Active Substance: PAROXETINE
     Dosage: 10 UNK, UNK
     Route: 048
     Dates: start: 20180424
  8. STRATTERA [Suspect]
     Active Substance: ATOMOXETINE HYDROCHLORIDE
     Dosage: 80 MG, DAILY
     Route: 048
     Dates: start: 20180404, end: 20180416
  9. LEXOTAN [Suspect]
     Active Substance: BROMAZEPAM
     Dosage: 6 MG, PRN
     Route: 048
     Dates: start: 201804
  10. BROTIZOLAM [Concomitant]
     Active Substance: BROTIZOLAM
     Indication: INSOMNIA
     Dosage: 0.25 MG, EACH EVENING
     Route: 048
     Dates: start: 20180301
  11. STRATTERA [Suspect]
     Active Substance: ATOMOXETINE HYDROCHLORIDE
     Indication: ATTENTION DEFICIT/HYPERACTIVITY DISORDER
     Dosage: 10 MG, BID
     Route: 048
     Dates: start: 20180305, end: 20180311
  12. LEXOTAN [Suspect]
     Active Substance: BROMAZEPAM
     Dosage: 6 MG, DAILY
     Route: 048
     Dates: start: 20180321, end: 20180411
  13. PAROXETINE. [Concomitant]
     Active Substance: PAROXETINE
     Dosage: 20 MG, DAILY
     Route: 048
     Dates: start: 20180307, end: 20180423

REACTIONS (4)
  - Generalised tonic-clonic seizure [Recovered/Resolved]
  - Contusion [Unknown]
  - Blood creatine phosphokinase increased [Recovered/Resolved]
  - Peripheral coldness [Unknown]

NARRATIVE: CASE EVENT DATE: 20180326
